FAERS Safety Report 20601399 (Version 1)
Quarter: 2022Q1

REPORT INFORMATION
  Report Type: Spontaneous
  Country: US (occurrence: None)
  Receive Date: 20220315
  Receipt Date: 20220315
  Transmission Date: 20220424
  Serious: Yes (Hospitalization)
  Sender: FDA-Public Use
  Company Number: None

PATIENT
  Age: 36 Year
  Sex: Female

DRUGS (1)
  1. CINACALCET HYDROCHLORIDE [Suspect]
     Active Substance: CINACALCET HYDROCHLORIDE
     Indication: Parathyroid tumour malignant
     Dosage: FREQUENCY : TWICE A DAY;?
     Route: 048
     Dates: start: 20220218

REACTIONS (4)
  - Malaise [None]
  - Blood calcium abnormal [None]
  - Pain [None]
  - Nausea [None]

NARRATIVE: CASE EVENT DATE: 20220301
